FAERS Safety Report 21771929 (Version 2)
Quarter: 2023Q1

REPORT INFORMATION
  Report Type: Spontaneous
  Country: US (occurrence: US)
  Receive Date: 20221223
  Receipt Date: 20230309
  Transmission Date: 20230418
  Serious: Yes (Death, Hospitalization, Other)
  Sender: FDA-Public Use
  Company Number: US-SA-SAC20221222000941

PATIENT
  Sex: Male
  Weight: 117 kg

DRUGS (1)
  1. DUPIXENT [Suspect]
     Active Substance: DUPILUMAB
     Indication: Dermatitis atopic
     Dosage: 300 MG QOW
     Route: 058

REACTIONS (5)
  - Cardiac arrest [Fatal]
  - Neoplasm malignant [Unknown]
  - Pneumonia [Unknown]
  - Respiratory failure [Unknown]
  - Hospitalisation [Unknown]
